FAERS Safety Report 13925635 (Version 2)
Quarter: 2017Q4

REPORT INFORMATION
  Report Type: Spontaneous
  Country: US (occurrence: US)
  Receive Date: 20170831
  Receipt Date: 20171130
  Transmission Date: 20180320
  Serious: No
  Sender: FDA-Public Use
  Company Number: US-SA-2017SA123828

PATIENT
  Age: 65 Year
  Sex: Female
  Weight: 83.64 kg

DRUGS (1)
  1. KEVZARA [Suspect]
     Active Substance: SARILUMAB
     Indication: RHEUMATOID ARTHRITIS
     Route: 065
     Dates: start: 20170415, end: 20170428

REACTIONS (3)
  - Cough [Recovered/Resolved]
  - Pruritus [Unknown]
  - Rash vesicular [Recovered/Resolved]

NARRATIVE: CASE EVENT DATE: 2017
